FAERS Safety Report 5058970-7 (Version None)
Quarter: 2006Q3

REPORT INFORMATION
  Report Type: 
  Country: None (occurrence: None)
  Receive Date: 20060721
  Receipt Date: 20060503
  Transmission Date: 20061208
  Serious: Yes (Hospitalization)
  Sender: FDA-Public Use
  Company Number: FR-SANOFI-SYNTHELABO-A02200601185

PATIENT
  Age: 80 Year
  Sex: Male

DRUGS (7)
  1. ASPIRIN [Concomitant]
     Indication: STENT PLACEMENT
     Dosage: UNK
     Route: 048
     Dates: start: 20060414
  2. PLAVIX [Suspect]
     Indication: STENT PLACEMENT
     Route: 048
     Dates: start: 20060407, end: 20060414
  3. GENTALLINE [Suspect]
     Indication: SEPTIC SHOCK
     Dosage: UNK
     Route: 042
     Dates: start: 20060414
  4. ORBENIN CAP [Suspect]
     Indication: SEPTIC SHOCK
     Dosage: UNK
     Route: 042
     Dates: start: 20060414
  5. CLAFORAN [Suspect]
     Indication: SEPTIC SHOCK
     Dosage: UNK
     Route: 042
     Dates: start: 20060414, end: 20060401
  6. PACLITAXEL [Suspect]
     Indication: STENT PLACEMENT
     Dosage: NOT APPLICABLE
     Route: 022
     Dates: start: 20060414
  7. TICLID [Suspect]
     Indication: STENT PLACEMENT
     Dosage: PROGRESSIVE DAILY DOSE FROM 75 TO 300 MG OVER FOUR DAYS
     Route: 048
     Dates: start: 20060419

REACTIONS (7)
  - AGRANULOCYTOSIS [None]
  - FALL [None]
  - HAEMORRHAGE [None]
  - RED BLOOD CELL COUNT DECREASED [None]
  - SEPTIC SHOCK [None]
  - STAPHYLOCOCCAL INFECTION [None]
  - THROMBOCYTOPENIA [None]
